FAERS Safety Report 9862927 (Version 1)
Quarter: 2014Q1

REPORT INFORMATION
  Report Type: Report from Study
  Country: GR (occurrence: GR)
  Receive Date: 20140203
  Receipt Date: 20140203
  Transmission Date: 20141002
  Serious: Yes (Hospitalization, Other)
  Sender: FDA-Public Use
  Company Number: GR-ROCHE-1342090

PATIENT
  Sex: Female
  Weight: 105 kg

DRUGS (3)
  1. ROACTEMRA [Suspect]
     Indication: RHEUMATOID ARTHRITIS
     Route: 042
     Dates: start: 20131014
  2. RYTMONORM [Concomitant]
     Route: 065
     Dates: start: 2012
  3. RIDAQ [Concomitant]
     Route: 065
     Dates: start: 2012

REACTIONS (4)
  - Arrhythmia [Unknown]
  - Palpitations [Unknown]
  - Vascular rupture [Unknown]
  - Local swelling [Unknown]
